FAERS Safety Report 17241997 (Version 1)
Quarter: 2019Q4

REPORT INFORMATION
  Report Type: Spontaneous
  Country: US (occurrence: US)
  Receive Date: 20191212
  Receipt Date: 20191212
  Transmission Date: 20200122
  Serious: No
  Sender: FDA-Public Use
  Company Number: None

PATIENT
  Age: 65 Year
  Sex: Female

DRUGS (12)
  1. AZELASTINE. [Concomitant]
     Active Substance: AZELASTINE HYDROCHLORIDE
  2. DEXAMETHASON [Concomitant]
     Active Substance: DEXAMETHASONE
  3. OXYBUTYNIN. [Concomitant]
     Active Substance: OXYBUTYNIN CHLORIDE
  4. MEKINIST [Suspect]
     Active Substance: TRAMETINIB DIMETHYL SULFOXIDE
     Route: 048
     Dates: start: 20191211
  5. TAFINLAR [Suspect]
     Active Substance: DABRAFENIB MESYLATE
     Route: 048
     Dates: start: 20191211
  6. PANTOPRAZOLE [Concomitant]
     Active Substance: PANTOPRAZOLE
  7. METHYLPHENID [Concomitant]
     Active Substance: METHYLPHENIDATE
  8. DICLOFENAC GEL [Concomitant]
     Active Substance: DICLOFENAC
  9. PREDNISONE. [Concomitant]
     Active Substance: PREDNISONE
  10. LEVETIRACETA [Concomitant]
  11. CLINDAMYCI [Concomitant]
  12. A-HYDROCORT [Concomitant]
     Active Substance: HYDROCORTISONE SODIUM SUCCINATE

REACTIONS (2)
  - Brain neoplasm [None]
  - Malignant melanoma [None]

NARRATIVE: CASE EVENT DATE: 20191211
